FAERS Safety Report 24368994 (Version 1)
Quarter: 2024Q3

REPORT INFORMATION
  Report Type: Spontaneous
  Country: US (occurrence: US)
  Receive Date: 20240927
  Receipt Date: 20240927
  Transmission Date: 20241016
  Serious: No
  Sender: ELI LILLY AND CO
  Company Number: US-ELI_LILLY_AND_COMPANY-US202409017079

PATIENT
  Age: 61 Year
  Sex: Female

DRUGS (3)
  1. FORTEO [Suspect]
     Active Substance: TERIPARATIDE
     Indication: Ill-defined disorder
     Dosage: 20 UG, UNKNOWN
     Route: 058
  2. FORTEO [Suspect]
     Active Substance: TERIPARATIDE
     Indication: Ill-defined disorder
     Dosage: 20 UG, UNKNOWN
     Route: 058
  3. TERIPARATIDE [Suspect]
     Active Substance: TERIPARATIDE
     Indication: Ill-defined disorder
     Dosage: 20 UG, UNKNOWN
     Route: 058

REACTIONS (3)
  - Nervousness [Unknown]
  - Impaired healing [Unknown]
  - Off label use [Unknown]
